FAERS Safety Report 11753434 (Version 1)
Quarter: 2015Q4

REPORT INFORMATION
  Report Type: Spontaneous
  Country: IT (occurrence: IT)
  Receive Date: 20151119
  Receipt Date: 20151119
  Transmission Date: 20160304
  Serious: Yes (Other)
  Sender: FDA-Public Use
  Company Number: IT-ACTAVIS-2015-24550

PATIENT
  Age: 71 Year
  Sex: Male
  Weight: 98 kg

DRUGS (3)
  1. FIDATO [Suspect]
     Active Substance: CEFTRIAXONE SODIUM
     Indication: PRODUCT USED FOR UNKNOWN INDICATION
     Dosage: 4 G, DAILY
     Route: 042
     Dates: start: 20151028, end: 20151102
  2. DEPAKIN [Concomitant]
     Active Substance: VALPROATE SODIUM
     Indication: EPILEPSY
     Dosage: 3 DF, UNKNOWN
     Route: 042
     Dates: start: 20151028, end: 20151109
  3. ACYCLOVIR (UNKNOWN) [Suspect]
     Active Substance: ACYCLOVIR
     Indication: ENCEPHALITIS
     Dosage: 30 MG/KG, DAILY
     Route: 042
     Dates: start: 20151028, end: 20151102

REACTIONS (1)
  - Acute kidney injury [Recovered/Resolved]

NARRATIVE: CASE EVENT DATE: 20151102
